FAERS Safety Report 6721629-1 (Version None)
Quarter: 2010Q2

REPORT INFORMATION
  Report Type: 
  Country: None (occurrence: None)
  Receive Date: 20100512
  Receipt Date: 20100505
  Transmission Date: 20101027
  Serious: Yes (Other)
  Sender: FDA-Public Use
  Company Number: US-JNJFOC-20100502398

PATIENT
  Sex: Female
  Weight: 57.3 kg

DRUGS (16)
  1. CISAPRIDE [Suspect]
     Indication: GASTROINTESTINAL MOTILITY DISORDER
     Route: 048
  2. CISAPRIDE [Suspect]
     Indication: GASTROOESOPHAGEAL REFLUX DISEASE
     Route: 048
  3. PREVACID [Concomitant]
     Indication: GASTROOESOPHAGEAL REFLUX DISEASE
     Route: 065
  4. CELEBREX [Concomitant]
     Indication: OSTEOARTHRITIS
     Route: 065
  5. SALAGEN [Concomitant]
     Indication: SJOGREN'S SYNDROME
     Route: 065
  6. METOCLOPRAMIDE HYDROCHLORIDE [Concomitant]
     Route: 065
  7. MULTI-VITAMINS [Concomitant]
     Indication: MEDICAL DIET
     Route: 065
  8. VITAMIN D [Concomitant]
     Indication: OSTEOPOROSIS
     Route: 048
  9. VITAMIN D [Concomitant]
     Route: 048
  10. VITAMIN D [Concomitant]
     Indication: ANTIOXIDANT THERAPY
     Route: 048
  11. VITAMIN D [Concomitant]
     Route: 048
  12. NASONEX [Concomitant]
     Indication: RHINITIS ALLERGIC
     Route: 065
  13. BONIVA [Concomitant]
     Indication: OSTEOPOROSIS
     Route: 042
  14. AVASTIN [Concomitant]
     Route: 065
  15. CALCIUM CARBONATE [Concomitant]
     Indication: MINERAL SUPPLEMENTATION
     Route: 065
  16. CALCIUM CARBONATE [Concomitant]
     Route: 065

REACTIONS (1)
  - ELECTROCARDIOGRAM QT PROLONGED [None]
